FAERS Safety Report 7217187-8 (Version None)
Quarter: 2011Q1

REPORT INFORMATION
  Report Type: 
  Country: None (occurrence: None)
  Receive Date: 20110110
  Receipt Date: 20101220
  Transmission Date: 20110831
  Serious: No
  Sender: FDA-Public Use
  Company Number: US-B.I. PHARMACEUTICALS,INC./RIDGEFIELD-2010-BP-14947BP

PATIENT
  Sex: Male

DRUGS (11)
  1. SIMVASTATIN [Concomitant]
     Indication: CARDIAC DISORDER
  2. CAPTOPRIL [Concomitant]
     Indication: CARDIAC DISORDER
  3. PRADAXA [Suspect]
     Indication: ATRIAL FIBRILLATION
  4. PACERONE [Concomitant]
     Indication: CARDIAC DISORDER
  5. ASPIRIN [Concomitant]
     Indication: PROPHYLAXIS
  6. ERYTHROMYCIN [Concomitant]
     Indication: BRONCHITIS
  7. PREDNISONE [Concomitant]
     Indication: BRONCHITIS
  8. MULTIVITAMIN [Concomitant]
     Indication: PROPHYLAXIS
  9. PRADAXA [Suspect]
     Indication: CEREBROVASCULAR ACCIDENT
     Dosage: 300 MG
     Route: 048
     Dates: start: 20101211
  10. COREG [Concomitant]
     Indication: CARDIAC DISORDER
  11. BENADRYL [Concomitant]
     Indication: INSOMNIA

REACTIONS (2)
  - DIZZINESS [None]
  - DYSPEPSIA [None]
